FAERS Safety Report 6077634-4 (Version None)
Quarter: 2009Q1

REPORT INFORMATION
  Report Type: 
  Country: None (occurrence: None)
  Receive Date: 20090211
  Receipt Date: 20090202
  Transmission Date: 20090719
  Serious: Yes (Other)
  Sender: FDA-Public Use
  Company Number: POMP-1000469

PATIENT
  Age: 4 Year
  Sex: Female

DRUGS (2)
  1. MYOZYME [Suspect]
     Indication: GLYCOGEN STORAGE DISEASE TYPE II
     Dosage: 20 MG/KG, Q2W, INTRAVENOUS
     Route: 042
     Dates: start: 20050802
  2. PNEUMOCOCCAL CONJUGATE VACCINE (PNEUMOCOCCAL CONJUGATE VACCINE) [Suspect]

REACTIONS (7)
  - ATELECTASIS [None]
  - ESCHERICHIA URINARY TRACT INFECTION [None]
  - HYPERCAPNIA [None]
  - HYPOKALAEMIA [None]
  - LETHARGY [None]
  - LEUKOPENIA [None]
  - LOBAR PNEUMONIA [None]
